FAERS Safety Report 14639964 (Version 1)
Quarter: 2018Q1

REPORT INFORMATION
  Report Type: Report from Study
  Country: None (occurrence: HU)
  Receive Date: 20180315
  Receipt Date: 20180315
  Transmission Date: 20180509
  Serious: Yes (Death)
  Sender: FDA-Public Use
  Company Number: HU-ABBVIE-18K-076-2287387-00

PATIENT
  Age: 49 Year
  Sex: Male

DRUGS (1)
  1. HUMIRA [Suspect]
     Active Substance: ADALIMUMAB
     Indication: PRODUCT USED FOR UNKNOWN INDICATION
     Route: 058
     Dates: start: 20171103, end: 20180301

REACTIONS (11)
  - Blood sodium decreased [Fatal]
  - Productive cough [Fatal]
  - Stoma site discharge [Fatal]
  - Drug effect decreased [Fatal]
  - Abdominal abscess [Fatal]
  - Adrenal disorder [Fatal]
  - Liver function test increased [Fatal]
  - Vomiting [Fatal]
  - Negativism [Fatal]
  - Pneumonia aspiration [Fatal]
  - Inflammatory marker increased [Fatal]

NARRATIVE: CASE EVENT DATE: 20180226
